FAERS Safety Report 9373176 (Version 1)
Quarter: 2013Q2

REPORT INFORMATION
  Report Type: Spontaneous
  Country: AT (occurrence: AT)
  Receive Date: 20130627
  Receipt Date: 20130627
  Transmission Date: 20140414
  Serious: Yes (Other)
  Sender: FDA-Public Use
  Company Number: AT-TEVA-413764ISR

PATIENT
  Age: 40 Year
  Sex: Male

DRUGS (10)
  1. PROPOFOL [Suspect]
     Dosage: 140 MILLIGRAM DAILY;
     Route: 042
     Dates: start: 20130403, end: 20130403
  2. TEMESTA [Suspect]
     Dosage: 4 MILLIGRAM DAILY;
     Route: 042
     Dates: start: 20130403, end: 20130403
  3. QUILONORM [Concomitant]
     Dosage: 450 MILLIGRAM DAILY;
     Dates: start: 20130318, end: 20130403
  4. DOMINAL FORTE [Concomitant]
     Dosage: 40 MILLIGRAM DAILY;
     Dates: start: 20130404, end: 20130409
  5. DOMINAL FORTE [Concomitant]
     Dosage: 80 MILLIGRAM DAILY;
     Dates: end: 20130403
  6. REVIA [Concomitant]
     Dosage: 50 MILLIGRAM DAILY;
  7. AURORIX [Concomitant]
     Dosage: 450 MILLIGRAM DAILY;
  8. TRITTICO RETARD [Concomitant]
     Dosage: 450 MILLIGRAM DAILY;
  9. VALDOXAN [Concomitant]
     Dosage: 50 MILLIGRAM DAILY;
  10. ZOLDEM [Concomitant]
     Dosage: 10 MILLIGRAM DAILY;

REACTIONS (1)
  - Agitation [Recovered/Resolved]
